FAERS Safety Report 4979273-2 (Version None)
Quarter: 2006Q2

REPORT INFORMATION
  Report Type: 
  Country: None (occurrence: None)
  Receive Date: 20060421
  Receipt Date: 20050421
  Transmission Date: 20061013
  Serious: Yes (Hospitalization)
  Sender: FDA-Public Use
  Company Number: US-MERCK-0504USA04281

PATIENT
  Age: 61 Year
  Sex: Male
  Weight: 111 kg

DRUGS (1)
  1. VIOXX [Suspect]
     Indication: MONARTHRITIS
     Route: 048
     Dates: start: 20030701, end: 20040101

REACTIONS (1)
  - MYOCARDIAL INFARCTION [None]
